FAERS Safety Report 21285225 (Version 1)
Quarter: 2022Q3

REPORT INFORMATION
  Report Type: Other
  Country: CA (occurrence: CA)
  Receive Date: 20220902
  Receipt Date: 20220902
  Transmission Date: 20221027
  Serious: Yes (Hospitalization, Other)
  Sender: FDA-Public Use
  Company Number: CA-APOTEX-2022AP012081

PATIENT
  Age: 66 Year
  Sex: Male

DRUGS (11)
  1. RAMIPRIL [Suspect]
     Active Substance: RAMIPRIL
     Indication: Hypertension
     Dosage: 5 MILLIGRAM, QD
     Route: 065
  2. SANDOSTATIN [Suspect]
     Active Substance: OCTREOTIDE ACETATE
     Indication: Malignant neoplasm of islets of Langerhans
     Dosage: UNK
     Route: 058
  3. SANDOSTATIN [Suspect]
     Active Substance: OCTREOTIDE ACETATE
     Dosage: 30 MILLIGRAM, Q.M.T.
     Route: 030
  4. AFINITOR [Suspect]
     Active Substance: EVEROLIMUS
     Indication: Malignant neoplasm of islets of Langerhans
     Dosage: 10 MILLIGRAM, QD
     Route: 048
  5. SANDOSTATIN LAR DEPOT [Suspect]
     Active Substance: OCTREOTIDE ACETATE
     Indication: Product used for unknown indication
     Dosage: 30 MILLIGRAM, Q.M.T.
     Route: 030
  6. SANDOSTATIN LAR DEPOT [Suspect]
     Active Substance: OCTREOTIDE ACETATE
     Dosage: 20 MILLIGRAM, Q.M.T.
     Route: 030
  7. SUTENT [Suspect]
     Active Substance: SUNITINIB MALATE
     Indication: Product used for unknown indication
     Dosage: 12.5 MILLIGRAM
     Route: 065
  8. SUTENT [Suspect]
     Active Substance: SUNITINIB MALATE
     Dosage: 25 MILLIGRAM
     Route: 065
  9. AMLODIPINE BESYLATE [Concomitant]
     Active Substance: AMLODIPINE BESYLATE
     Indication: Product used for unknown indication
     Dosage: 2.5 MILLIGRAM, QD
     Route: 065
  10. INDAPAMIDE [Concomitant]
     Active Substance: INDAPAMIDE
     Indication: Product used for unknown indication
     Dosage: 1.25 MILLIGRAM, QD
     Route: 065
  11. LIPITOR [Concomitant]
     Active Substance: ATORVASTATIN CALCIUM
     Indication: Product used for unknown indication
     Dosage: 20 MILLIGRAM, QD
     Route: 065

REACTIONS (38)
  - Yellow skin [Not Recovered/Not Resolved]
  - Abdominal distension [Not Recovered/Not Resolved]
  - Blood bilirubin abnormal [Not Recovered/Not Resolved]
  - Chills [Not Recovered/Not Resolved]
  - Blood glucose decreased [Not Recovered/Not Resolved]
  - Blood pressure increased [Not Recovered/Not Resolved]
  - Feeling abnormal [Not Recovered/Not Resolved]
  - Flushing [Not Recovered/Not Resolved]
  - Hypertension [Not Recovered/Not Resolved]
  - Injection site pain [Not Recovered/Not Resolved]
  - Musculoskeletal pain [Not Recovered/Not Resolved]
  - Needle issue [Not Recovered/Not Resolved]
  - Neoplasm progression [Not Recovered/Not Resolved]
  - Pollakiuria [Not Recovered/Not Resolved]
  - Prostate cancer stage I [Not Recovered/Not Resolved]
  - Psychomotor hyperactivity [Not Recovered/Not Resolved]
  - Pulmonary embolism [Not Recovered/Not Resolved]
  - Pulse abnormal [Not Recovered/Not Resolved]
  - Rectal haemorrhage [Not Recovered/Not Resolved]
  - Renal mass [Not Recovered/Not Resolved]
  - Second primary malignancy [Not Recovered/Not Resolved]
  - Skin disorder [Not Recovered/Not Resolved]
  - Syringe issue [Not Recovered/Not Resolved]
  - Sleep disorder [Not Recovered/Not Resolved]
  - White blood cell count decreased [Not Recovered/Not Resolved]
  - Underdose [Not Recovered/Not Resolved]
  - Vision blurred [Not Recovered/Not Resolved]
  - Tremor [Not Recovered/Not Resolved]
  - Epistaxis [Not Recovered/Not Resolved]
  - Blood glucose increased [Not Recovered/Not Resolved]
  - Anxiety [Not Recovered/Not Resolved]
  - Hyperhidrosis [Not Recovered/Not Resolved]
  - Abdominal pain [Not Recovered/Not Resolved]
  - Syncope [Not Recovered/Not Resolved]
  - Blood bilirubin increased [Not Recovered/Not Resolved]
  - Dizziness [Not Recovered/Not Resolved]
  - Vertigo [Not Recovered/Not Resolved]
  - Blood pressure decreased [Not Recovered/Not Resolved]
